FAERS Safety Report 5838963-X (Version None)
Quarter: 2008Q3

REPORT INFORMATION
  Report Type: 
  Country: None (occurrence: None)
  Receive Date: 20080808
  Receipt Date: 20080807
  Transmission Date: 20090109
  Serious: Yes (Other)
  Sender: FDA-Public Use
  Company Number: US-BOEHRINGER INGELHEIM GMBH, GERMANY-2008-BP-09433RO

PATIENT
  Sex: Female

DRUGS (12)
  1. FLUTICASONE PROPIONATE [Suspect]
     Indication: HYPERSENSITIVITY
     Route: 045
     Dates: start: 20050101, end: 20050101
  2. FLUTICASONE PROPIONATE [Suspect]
     Route: 045
     Dates: start: 20070101, end: 20070101
  3. FLONASE [Suspect]
     Indication: HYPERSENSITIVITY
     Route: 045
     Dates: start: 20050101, end: 20050101
  4. FLONASE [Suspect]
     Route: 045
     Dates: start: 20070101, end: 20070101
  5. ADVAIR DISKUS 100/50 [Suspect]
     Indication: ASTHMA
     Route: 055
  6. ADVAIR DISKUS 100/50 [Suspect]
     Indication: COUGH
     Route: 055
  7. ADVAIR DISKUS 100/50 [Suspect]
     Route: 055
     Dates: start: 20030101
  8. VALTREX [Suspect]
     Indication: GENITAL HERPES
     Route: 048
  9. VALTREX [Suspect]
     Route: 048
  10. MONTELUKAST SODIUM [Concomitant]
     Indication: ASTHMA
  11. SALBUTAMOL SULPHATE [Concomitant]
     Indication: ASTHMA
     Route: 055
  12. SALBUTAMOL SULPHATE [Concomitant]

REACTIONS (3)
  - CHEST DISCOMFORT [None]
  - DRUG EXPOSURE DURING PREGNANCY [None]
  - DRUG INEFFECTIVE [None]
